FAERS Safety Report 9590929 (Version 1)
Quarter: 2013Q4

REPORT INFORMATION
  Report Type: Spontaneous
  Country: US (occurrence: US)
  Receive Date: 20131003
  Receipt Date: 20131003
  Transmission Date: 20140711
  Serious: No
  Sender: FDA-Public Use
  Company Number: US-AMGEN-USASP2012079830

PATIENT
  Sex: Female

DRUGS (4)
  1. ENBREL [Suspect]
     Indication: PRODUCT USED FOR UNKNOWN INDICATION
     Dosage: 25 MG, 2 TIMES/WK
     Route: 058
  2. HUMIRA [Concomitant]
     Indication: RHEUMATOID ARTHRITIS
     Dosage: 40 MG, UNK
     Route: 058
  3. LISINOPRIL [Concomitant]
     Dosage: 10 MG, UNK
  4. ALEVE [Concomitant]
     Dosage: 220 MG, UNK

REACTIONS (1)
  - Treatment failure [Unknown]
